FAERS Safety Report 18682550 (Version 3)
Quarter: 2021Q3

REPORT INFORMATION
  Report Type: Report from Study
  Country: CA (occurrence: CA)
  Receive Date: 20201230
  Receipt Date: 20210823
  Transmission Date: 20211014
  Serious: Yes (Other)
  Sender: FDA-Public Use
  Company Number: CA-JNJFOC-20201239514

PATIENT
  Age: 30 Year
  Sex: Male
  Weight: 81.72 kg

DRUGS (1)
  1. REMICADE [Suspect]
     Active Substance: INFLIXIMAB
     Indication: CROHN^S DISEASE
     Dosage: END DATE: 23?JUN?2021
     Route: 042
     Dates: start: 20040713, end: 20201104

REACTIONS (2)
  - Immunodeficiency [Unknown]
  - COVID-19 [Recovering/Resolving]

NARRATIVE: CASE EVENT DATE: 20201210
